FAERS Safety Report 7575695 (Version 5)
Quarter: 2013Q3

REPORT INFORMATION
  Report Type: Spontaneous
  Country: DE (occurrence: DE)
  Receive Date: 20100908
  Receipt Date: 20130905
  Transmission Date: 20140515
  Serious: Yes (Hospitalization)
  Sender: FDA-Public Use
  Company Number: DE-BIOGENIDEC-2010BI029865

PATIENT
  Age: 28 Year
  Sex: Male
  Weight: 86 kg

DRUGS (3)
  1. TYSABRI [Suspect]
     Indication: RELAPSING-REMITTING MULTIPLE SCLEROSIS
     Route: 042
     Dates: start: 200806, end: 200812
  2. TYSABRI [Suspect]
     Indication: RELAPSING-REMITTING MULTIPLE SCLEROSIS
     Route: 042
     Dates: start: 20090421, end: 201008
  3. METOPROLOL [Concomitant]
     Indication: PRODUCT USED FOR UNKNOWN INDICATION
     Dates: end: 201008

REACTIONS (7)
  - Multi-organ failure [Recovered/Resolved]
  - Septic shock [Recovered/Resolved]
  - Acinetobacter bacteraemia [Recovered/Resolved]
  - Necrotising fasciitis [Recovered/Resolved]
  - Tachyarrhythmia [Recovered/Resolved]
  - Pineocytoma [Unknown]
  - Multiple sclerosis relapse [Recovered/Resolved]
